FAERS Safety Report 10209658 (Version 1)
Quarter: 2014Q2

REPORT INFORMATION
  Report Type: Spontaneous
  Country: US (occurrence: US)
  Receive Date: 20140602
  Receipt Date: 20140602
  Transmission Date: 20141212
  Serious: No
  Sender: FDA-Public Use
  Company Number: US-BIOGENIDEC-2014BI048807

PATIENT
  Age: 45 Year
  Sex: Female

DRUGS (5)
  1. AVONEX [Suspect]
     Indication: MULTIPLE SCLEROSIS
     Route: 030
     Dates: start: 20070308
  2. ALPRAZOLAM [Concomitant]
  3. HYDROCODONE-ACETAMINOPHEN [Concomitant]
  4. CITALOPRAM [Concomitant]
  5. HYDROBROMIDE [Concomitant]

REACTIONS (1)
  - Injection site bruising [Unknown]
